FAERS Safety Report 7302302-8 (Version None)
Quarter: 2011Q1

REPORT INFORMATION
  Report Type: 
  Country: None (occurrence: None)
  Receive Date: 20110218
  Receipt Date: 20110211
  Transmission Date: 20110831
  Serious: Yes (Hospitalization, Other)
  Sender: FDA-Public Use
  Company Number: US-B.I. PHARMACEUTICALS,INC./RIDGEFIELD-2008-BP-01170BP

PATIENT
  Sex: Female

DRUGS (7)
  1. MIRAPEX [Suspect]
     Indication: PARKINSON'S DISEASE
     Route: 048
     Dates: start: 20030213
  2. PAXIL [Concomitant]
     Indication: DEPRESSION
     Dosage: 10 MG
     Route: 048
     Dates: start: 20040101, end: 20070101
  3. AZILECT [Concomitant]
     Dosage: 1 MG
     Dates: start: 20061012
  4. MIRAPEX [Suspect]
  5. MIRAPEX [Suspect]
     Dosage: 2 MG
     Route: 048
     Dates: start: 20041028
  6. MIRAPEX [Suspect]
     Dosage: 1.5 MG
     Route: 048
     Dates: start: 20070921
  7. SINEMET [Concomitant]
     Dates: start: 20071201

REACTIONS (13)
  - SUICIDE ATTEMPT [None]
  - ANXIETY [None]
  - MAJOR DEPRESSION [None]
  - NOCTURIA [None]
  - EMOTIONAL DISTRESS [None]
  - DEPRESSION [None]
  - DYSGRAPHIA [None]
  - POOR PERSONAL HYGIENE [None]
  - MOVEMENT DISORDER [None]
  - PATHOLOGICAL GAMBLING [None]
  - DISABILITY [None]
  - COMPULSIVE SHOPPING [None]
  - DISTURBANCE IN ATTENTION [None]
